FAERS Safety Report 8081202-2 (Version None)
Quarter: 2012Q1

REPORT INFORMATION
  Report Type: 
  Country: None (occurrence: None)
  Receive Date: 20120130
  Receipt Date: 20120125
  Transmission Date: 20120608
  Serious: Yes (Death, Other)
  Sender: FDA-Public Use
  Company Number: FR-ASTRAZENECA-2012SE04087

PATIENT
  Age: 67 Year
  Sex: Male

DRUGS (3)
  1. QUETIAPINE FUMARATE [Suspect]
     Indication: BIPOLAR I DISORDER
     Route: 048
     Dates: start: 20111216, end: 20111216
  2. QUETIAPINE FUMARATE [Suspect]
     Route: 048
     Dates: start: 20111217, end: 20111221
  3. DEPAKOTE [Concomitant]
     Indication: BIPOLAR DISORDER
     Dosage: LONG LASTING TREATMENT

REACTIONS (3)
  - COMPLETED SUICIDE [None]
  - MALAISE [None]
  - SOMNOLENCE [None]
